FAERS Safety Report 5194519-6 (Version None)
Quarter: 2006Q4

REPORT INFORMATION
  Report Type: 
  Country: None (occurrence: None)
  Receive Date: 20061222
  Receipt Date: 20061221
  Transmission Date: 20070319
  Serious: Yes (Other)
  Sender: FDA-Public Use
  Company Number: HQWYE594207DEC06

PATIENT
  Age: 70 Year
  Sex: Female

DRUGS (14)
  1. PANTOPRAZOLE SODIUM [Suspect]
     Indication: DUODENITIS
     Dosage: 40 MG 2X PER 1 DAY ORAL
     Route: 048
     Dates: start: 20061114, end: 20061121
  2. PANTOPRAZOLE SODIUM [Suspect]
     Indication: GASTRITIS
     Dosage: 40 MG 2X PER 1 DAY ORAL
     Route: 048
     Dates: start: 20061114, end: 20061121
  3. AMOXICILLIN [Suspect]
     Indication: DUODENITIS
     Dosage: 1000 MG 2X PER 1 DAY ORAL
     Route: 048
     Dates: start: 20061114, end: 20061121
  4. AMOXICILLIN [Suspect]
     Indication: GASTRITIS
     Dosage: 1000 MG 2X PER 1 DAY ORAL
     Route: 048
     Dates: start: 20061114, end: 20061121
  5. CLARITHROMYCIN [Suspect]
     Indication: DUODENITIS
     Dosage: 500 MG 2X PER 1 DAY ORAL
     Route: 048
     Dates: start: 20061114, end: 20061121
  6. CLARITHROMYCIN [Suspect]
     Indication: GASTRITIS
     Dosage: 500 MG 2X PER 1 DAY ORAL
     Route: 048
     Dates: start: 20061114, end: 20061121
  7. ISMO - SLOW RELEASE (ISOSORBIDE MONONITRATE) [Concomitant]
  8. BISOPROLOL  STADE  (BISOPROLOL) [Concomitant]
  9. COAPROVEL (IRBESARTAN/HYDROCHLOROTHIAZIDE) [Concomitant]
  10. NOVORAPID (INSULIN ASPART) [Concomitant]
  11. ACETYLSALICYLIC ACID SRT [Concomitant]
  12. BEXTRA [Concomitant]
  13. NORVASC [Concomitant]
  14. LANTUS [Concomitant]

REACTIONS (1)
  - BLOOD GLUCOSE DECREASED [None]
